FAERS Safety Report 6550736-1 (Version None)
Quarter: 2010Q1

REPORT INFORMATION
  Report Type: 
  Country: None (occurrence: None)
  Receive Date: 20100125
  Receipt Date: 20100114
  Transmission Date: 20100710
  Serious: Yes (Hospitalization, Other)
  Sender: FDA-Public Use
  Company Number: PHEH2008US03569

PATIENT
  Sex: Female

DRUGS (10)
  1. ZELNORM [Suspect]
     Dosage: 6 MG, BID
     Route: 048
     Dates: end: 20070101
  2. CYMBALTA [Suspect]
     Dosage: 60 MG, QD
  3. NEXIUM [Concomitant]
     Dosage: 40 MG, QD
  4. PREMARIN [Concomitant]
     Dosage: 0.625 MG, QD
  5. DIOVAN [Concomitant]
     Dosage: 320 MG, QD
  6. SINGULAIR [Concomitant]
     Dosage: 10 MG, QD
  7. LIPITOR [Concomitant]
     Dosage: 20 MG, QD
  8. POTASSIUM CHLORIDE [Concomitant]
     Dosage: 10 MEQ, BID
  9. METFORMIN [Concomitant]
     Dosage: 500 MG, BID
  10. ASPIRIN [Concomitant]
     Dosage: 81 MG, QD

REACTIONS (17)
  - ANXIETY [None]
  - BASAL CELL CARCINOMA [None]
  - CARDIOVASCULAR DISORDER [None]
  - COUGH [None]
  - DIZZINESS [None]
  - DYSURIA [None]
  - HEADACHE [None]
  - HYPOKALAEMIA [None]
  - INJURY [None]
  - INSOMNIA [None]
  - OROPHARYNGEAL PAIN [None]
  - SPINAL FUSION SURGERY [None]
  - SURGERY [None]
  - TACHYCARDIA [None]
  - TRANSIENT ISCHAEMIC ATTACK [None]
  - TREMOR [None]
  - UMBILICAL HERNIA REPAIR [None]
